FAERS Safety Report 16935378 (Version 1)
Quarter: 2019Q4

REPORT INFORMATION
  Report Type: Spontaneous
  Country: US (occurrence: US)
  Receive Date: 20191018
  Receipt Date: 20191018
  Transmission Date: 20200122
  Serious: No
  Sender: FDA-Public Use
  Company Number: US-SA-2019SA275155

PATIENT
  Sex: Male

DRUGS (1)
  1. PRALUENT [Suspect]
     Active Substance: ALIROCUMAB
     Dosage: UNK
     Dates: start: 2016

REACTIONS (3)
  - Product administered at inappropriate site [Unknown]
  - Wrong technique in device usage process [Unknown]
  - Injury associated with device [Unknown]

NARRATIVE: CASE EVENT DATE: 2019
